FAERS Safety Report 6401855-1 (Version None)
Quarter: 2009Q4

REPORT INFORMATION
  Report Type: 
  Country: None (occurrence: None)
  Receive Date: 20091015
  Receipt Date: 20091005
  Transmission Date: 20100525
  Serious: Yes (Other)
  Sender: FDA-Public Use
  Company Number: GB-ELI_LILLY_AND_COMPANY-GB200910001077

PATIENT
  Age: 48 Year
  Sex: Male

DRUGS (5)
  1. CYMBALTA [Suspect]
     Dosage: 60 MG, UNKNOWN
     Route: 065
     Dates: start: 20090101, end: 20090101
  2. CYMBALTA [Suspect]
     Dosage: 90 MG, UNKNOWN
     Route: 065
     Dates: start: 20090101, end: 20090101
  3. CYMBALTA [Suspect]
     Dosage: 60 MG, UNKNOWN
     Route: 065
     Dates: start: 20090101
  4. RISPERIDONE [Concomitant]
     Dosage: UNK, UNKNOWN
     Route: 065
  5. LAMOTRIGINE [Concomitant]
     Dosage: UNK, UNKNOWN
     Route: 065

REACTIONS (2)
  - NEGATIVE THOUGHTS [None]
  - SUICIDAL IDEATION [None]
